FAERS Safety Report 9319327 (Version 1)
Quarter: 2013Q2

REPORT INFORMATION
  Report Type: Other
  Country: GB (occurrence: GB)
  Receive Date: 20130530
  Receipt Date: 20130530
  Transmission Date: 20140414
  Serious: Yes (Hospitalization)
  Sender: FDA-Public Use
  Company Number: GB-TARO PHARMACEUTICALS U.S.A., INC-2013SUN00645

PATIENT
  Age: 54 Year
  Sex: Male

DRUGS (1)
  1. CARBAMAZEPINE [Suspect]
     Indication: TRIGEMINAL NEURALGIA
     Dosage: 200 MG, TID
     Route: 048

REACTIONS (8)
  - Dysuria [Unknown]
  - Hypersensitivity [Recovering/Resolving]
  - Mouth ulceration [Unknown]
  - Swollen tongue [Unknown]
  - Rash erythematous [Unknown]
  - Pruritus [Unknown]
  - Rash generalised [Unknown]
  - Pain [Unknown]
